FAERS Safety Report 15501014 (Version 1)
Quarter: 2018Q4

REPORT INFORMATION
  Report Type: Spontaneous
  Country: FR (occurrence: FR)
  Receive Date: 20181015
  Receipt Date: 20181015
  Transmission Date: 20190205
  Serious: Yes (Other)
  Sender: FDA-Public Use
  Company Number: FR-PFIZER INC-2018410256

PATIENT
  Sex: Male

DRUGS (2)
  1. MYDRIATICUM [Suspect]
     Active Substance: TROPICAMIDE
     Dosage: UNK
     Route: 065
  2. LYRICA [Suspect]
     Active Substance: PREGABALIN
     Dosage: UNK
     Route: 048

REACTIONS (2)
  - Prescription form tampering [Recovering/Resolving]
  - Drug abuse [Recovering/Resolving]
